FAERS Safety Report 9322866 (Version 7)
Quarter: 2014Q1

REPORT INFORMATION
  Report Type: Spontaneous
  Country: US (occurrence: US)
  Receive Date: 20130601
  Receipt Date: 20140326
  Transmission Date: 20141002
  Serious: Yes (Hospitalization, Other)
  Sender: FDA-Public Use
  Company Number: US-ASTRAZENECA-2013SE38621

PATIENT
  Age: 76 Year
  Sex: Female
  Weight: 65.8 kg

DRUGS (43)
  1. NEXIUM [Suspect]
     Indication: GASTROOESOPHAGEAL REFLUX DISEASE
     Route: 048
     Dates: start: 20020226
  2. NEXIUM [Suspect]
     Indication: GASTROOESOPHAGEAL REFLUX DISEASE
     Route: 048
     Dates: start: 20020226
  3. NEXIUM [Suspect]
     Indication: GASTROOESOPHAGEAL REFLUX DISEASE
     Route: 048
     Dates: start: 20020426, end: 20081106
  4. NEXIUM [Suspect]
     Indication: GASTROOESOPHAGEAL REFLUX DISEASE
     Route: 048
     Dates: start: 20020426, end: 20081106
  5. NEXIUM [Suspect]
     Indication: GASTROOESOPHAGEAL REFLUX DISEASE
     Route: 048
     Dates: start: 20071113, end: 20081106
  6. NEXIUM [Suspect]
     Indication: GASTROOESOPHAGEAL REFLUX DISEASE
     Route: 048
     Dates: start: 20071113, end: 20081106
  7. NEXIUM [Suspect]
     Indication: GASTROOESOPHAGEAL REFLUX DISEASE
     Route: 048
     Dates: start: 20091203, end: 20110517
  8. NEXIUM [Suspect]
     Indication: GASTROOESOPHAGEAL REFLUX DISEASE
     Route: 048
     Dates: start: 20091203, end: 20110517
  9. PRILOSEC [Suspect]
     Indication: GASTROOESOPHAGEAL REFLUX DISEASE
     Route: 048
     Dates: start: 20050603, end: 20050901
  10. PRILOSEC [Suspect]
     Indication: GASTROOESOPHAGEAL REFLUX DISEASE
     Route: 048
     Dates: start: 20060119, end: 20071019
  11. PRILOSEC [Suspect]
     Indication: GASTROOESOPHAGEAL REFLUX DISEASE
     Route: 048
     Dates: start: 20060119
  12. PRILOSEC [Suspect]
     Indication: GASTROOESOPHAGEAL REFLUX DISEASE
     Route: 048
     Dates: start: 20090103, end: 20090127
  13. PRILOSEC [Suspect]
     Indication: GASTROOESOPHAGEAL REFLUX DISEASE
     Route: 048
     Dates: start: 20110518, end: 20120821
  14. PROTONIX/PANTOPRAZOLE [Concomitant]
     Indication: GASTROOESOPHAGEAL REFLUX DISEASE
  15. PROTONIX/PANTOPRAZOLE [Concomitant]
     Indication: GASTROOESOPHAGEAL REFLUX DISEASE
     Dates: start: 20090128, end: 20091118
  16. PREVACID [Concomitant]
     Indication: GASTROOESOPHAGEAL REFLUX DISEASE
     Dates: start: 20020607, end: 20050602
  17. PREVACID [Concomitant]
     Indication: GASTROOESOPHAGEAL REFLUX DISEASE
  18. TITRALAC OTC [Concomitant]
     Indication: GASTROOESOPHAGEAL REFLUX DISEASE
     Dosage: TWO TABLETS TWO TO THREE TIMES DAILY
     Dates: start: 20020421, end: 20130731
  19. ALKA-SELTZER [Concomitant]
     Indication: GASTROOESOPHAGEAL REFLUX DISEASE
     Dosage: TWO OR THREE TIMES WEEKLY
     Dates: start: 20020427, end: 20130731
  20. ALKA-SELTZER [Concomitant]
     Indication: GASTROOESOPHAGEAL REFLUX DISEASE
     Dosage: 2 TABLETS 1-2 TIMES DAILY
     Dates: start: 200204, end: 200307
  21. DICYCLOMINE [Concomitant]
     Indication: IRRITABLE BOWEL SYNDROME
     Dates: start: 201306
  22. GABAPENTIN [Concomitant]
     Indication: NEUROPATHY PERIPHERAL
     Dates: start: 2002
  23. PREMARIN [Concomitant]
  24. ASPIRIN [Concomitant]
     Indication: ANTICOAGULANT THERAPY
  25. NITROGLYCERINE [Concomitant]
     Dates: start: 2002
  26. NORVASC [Concomitant]
     Indication: BLOOD PRESSURE
     Dates: start: 2002
  27. NORVASC [Concomitant]
     Indication: ANGINA PECTORIS
     Dates: start: 2002
  28. NORVASC [Concomitant]
     Indication: BLOOD PRESSURE
     Dates: start: 2002
  29. NORVASC [Concomitant]
     Indication: ANGINA PECTORIS
     Dates: start: 2002
  30. NIFEDIPINE [Concomitant]
     Dates: start: 2002
  31. CELEBREX [Concomitant]
     Dates: start: 2002
  32. DICLOFENAC [Concomitant]
     Dates: start: 2002
  33. ISOSORBIDE [Concomitant]
     Dates: start: 2002
  34. ETODOLAC [Concomitant]
     Dates: start: 2002
  35. LIPITOR [Concomitant]
     Dates: start: 2002
  36. MECLIZINE [Concomitant]
     Dates: start: 2002
  37. TRAMADOL [Concomitant]
     Dates: start: 2002
  38. NASONEX [Concomitant]
     Dates: start: 2002
  39. DOXAZOSIN [Concomitant]
     Indication: URINARY TRACT DISORDER
  40. OXYBUTYNIN [Concomitant]
     Indication: URINARY TRACT DISORDER
  41. LEVOTHYROXINE [Concomitant]
     Indication: URINARY TRACT INFECTION
  42. FUROSEMIDE [Concomitant]
     Indication: FLUID RETENTION
  43. CARVEDILOL [Concomitant]
     Indication: BLOOD PRESSURE

REACTIONS (20)
  - Sinus disorder [Unknown]
  - Pharyngeal disorder [Unknown]
  - Hypercalcaemia [Unknown]
  - Multiple fractures [Unknown]
  - Cataract [Unknown]
  - Fall [Unknown]
  - Bone lesion [Unknown]
  - Angina pectoris [Unknown]
  - Wrist fracture [Unknown]
  - Radius fracture [Unknown]
  - Hand fracture [Unknown]
  - Osteoporosis [Unknown]
  - Bone disorder [Unknown]
  - Rotator cuff syndrome [Unknown]
  - Eye inflammation [Unknown]
  - Choking [Unknown]
  - Hypertension [Unknown]
  - Arthritis [Unknown]
  - Tendonitis [Unknown]
  - Osteoarthritis [Unknown]
